FAERS Safety Report 7772239-9 (Version None)
Quarter: 2011Q3

REPORT INFORMATION
  Report Type: 
  Country: None (occurrence: None)
  Receive Date: 20110922
  Receipt Date: 20110616
  Transmission Date: 20111222
  Serious: Yes (Hospitalization)
  Sender: FDA-Public Use
  Company Number: US-ASTRAZENECA-2011SE36836

PATIENT
  Age: 39 Year
  Sex: Female

DRUGS (4)
  1. SEROQUEL XR [Suspect]
     Route: 048
  2. BENZO [Concomitant]
  3. SEROQUEL XR [Suspect]
     Route: 048
  4. CELEXA [Concomitant]

REACTIONS (1)
  - CONVULSION [None]
